FAERS Safety Report 21499020 (Version 2)
Quarter: 2022Q4

REPORT INFORMATION
  Report Type: Spontaneous
  Country: US (occurrence: US)
  Receive Date: 20221024
  Receipt Date: 20221110
  Transmission Date: 20230113
  Serious: Yes (Hospitalization, Other)
  Sender: FDA-Public Use
  Company Number: US-MYLANLABS-2022M1116429

PATIENT
  Age: 60 Year
  Sex: Male
  Weight: 72.57 kg

DRUGS (3)
  1. MIRTAZAPINE [Suspect]
     Active Substance: MIRTAZAPINE
     Indication: Sleep disorder
     Dosage: 15 MILLIGRAM, BIMONTHLY
     Route: 065
     Dates: start: 202101, end: 202204
  2. MIRTAZAPINE [Suspect]
     Active Substance: MIRTAZAPINE
     Dosage: 7 MILLIGRAM, HS (7 MG X 1 AT BEDTIME)
     Route: 065
     Dates: start: 202101, end: 202204
  3. DIAZEPAM [Concomitant]
     Active Substance: DIAZEPAM
     Indication: Anxiety
     Dosage: 10 MILLIGRAM, TID (10 MG X 3 PER DAY)
     Route: 065
     Dates: start: 201401

REACTIONS (5)
  - Hospitalisation [Unknown]
  - Cerebrovascular accident [Unknown]
  - Wrong technique in product usage process [Unknown]
  - Treatment noncompliance [Unknown]
  - Muscular weakness [Unknown]

NARRATIVE: CASE EVENT DATE: 20220924
